FAERS Safety Report 6348375-0 (Version None)
Quarter: 2009Q3

REPORT INFORMATION
  Report Type: 
  Country: None (occurrence: None)
  Receive Date: 20090908
  Receipt Date: 20090820
  Transmission Date: 20100115
  Serious: Yes (Death, Hospitalization)
  Sender: FDA-Public Use
  Company Number: 2008AL012367

PATIENT
  Age: 66 Year
  Sex: Male
  Weight: 364 kg

DRUGS (23)
  1. DIGOXIN [Suspect]
     Indication: ATRIAL FIBRILLATION
     Dosage: 0.25MG, PO
     Route: 048
     Dates: start: 20071001, end: 20081105
  2. ISOSORBIDE [Concomitant]
  3. PLAVIX [Concomitant]
  4. FUROSEMIDE [Concomitant]
  5. POTASSIUM CHLORIDE [Concomitant]
  6. NITROGLYCERIN [Concomitant]
  7. AVAPRO [Concomitant]
  8. ALLOPURINOL [Concomitant]
  9. WARFARIN [Concomitant]
  10. METOPROLOL TARTRATE [Concomitant]
  11. SIMVASTATIN [Concomitant]
  12. FERROUS SULFATE TAB [Concomitant]
  13. METFORMIN HCL [Concomitant]
  14. NEXIUM [Concomitant]
  15. RENAL CAPSULE [Concomitant]
  16. DIATX [Concomitant]
  17. LEVEMIR [Concomitant]
  18. BD PEN NEEDLES [Concomitant]
  19. LACTULOSE [Concomitant]
  20. TYLENOL (CAPLET) [Concomitant]
  21. ATROVENT [Concomitant]
  22. MAGNESIUM OXIDE [Concomitant]
  23. NOVOLOG [Concomitant]

REACTIONS (17)
  - ANXIETY [None]
  - ASCITES [None]
  - DIALYSIS [None]
  - ECONOMIC PROBLEM [None]
  - HAEMOGLOBIN DECREASED [None]
  - HEPATIC CIRRHOSIS [None]
  - HYPOTENSION [None]
  - MENTAL STATUS CHANGES [None]
  - MULTI-ORGAN FAILURE [None]
  - MULTIPLE INJURIES [None]
  - PAIN [None]
  - PORTAL HYPERTENSIVE GASTROPATHY [None]
  - RENAL FAILURE ACUTE [None]
  - SEPTIC SHOCK [None]
  - STAPHYLOCOCCAL BACTERAEMIA [None]
  - THROMBOCYTOPENIA [None]
  - UPPER GASTROINTESTINAL HAEMORRHAGE [None]
